FAERS Safety Report 10669497 (Version 3)
Quarter: 2015Q1

REPORT INFORMATION
  Report Type: Report from Study
  Country: US (occurrence: US)
  Receive Date: 20141222
  Receipt Date: 20150326
  Transmission Date: 20150720
  Serious: Yes (Hospitalization)
  Sender: FDA-Public Use
  Company Number: US-ACTELION-A-US2014-109839

PATIENT
  Age: 2 Year
  Sex: Female

DRUGS (8)
  1. BUDESONIDE. [Concomitant]
     Active Substance: BUDESONIDE
     Dosage: 2 ML, BID
     Route: 055
     Dates: start: 2013
  2. CHLOROTHIAZIDE. [Concomitant]
     Active Substance: CHLOROTHIAZIDE
     Dosage: 180 MG, BID
     Route: 048
     Dates: start: 201502
  3. SILDENAFIL. [Concomitant]
     Active Substance: SILDENAFIL
     Indication: PULMONARY ARTERIAL HYPERTENSION
     Dosage: 11.25 MG, Q8H
     Route: 048
     Dates: start: 2013
  4. TRACLEER [Suspect]
     Active Substance: BOSENTAN\BOSENTAN MONOHYDRATE
     Indication: PULMONARY ARTERIAL HYPERTENSION
     Dosage: 19 MG, BID
     Route: 048
     Dates: start: 201304
  5. POTASSIUM CHLORIDE. [Concomitant]
     Active Substance: POTASSIUM CHLORIDE
     Dosage: 16 MCG, Q8H
     Route: 048
     Dates: start: 201502
  6. BUMETANIDE. [Concomitant]
     Active Substance: BUMETANIDE
     Dosage: 1.8 MG, UNK
     Route: 048
     Dates: start: 2013
  7. CLINDAMYCIN [Concomitant]
     Active Substance: CLINDAMYCIN\CLINDAMYCIN PHOSPHATE
     Dosage: 180 MG, TID
     Dates: start: 201502, end: 201502
  8. SPIRONOLACTONE. [Concomitant]
     Active Substance: SPIRONOLACTONE
     Dosage: 20 MG, BID
     Route: 048
     Dates: start: 201502

REACTIONS (4)
  - Cardiac operation [Recovering/Resolving]
  - Lung consolidation [Recovering/Resolving]
  - Pleural effusion [Recovered/Resolved]
  - Pneumonia [Recovering/Resolving]

NARRATIVE: CASE EVENT DATE: 20150120
